FAERS Safety Report 24766454 (Version 1)
Quarter: 2024Q4

REPORT INFORMATION
  Report Type: Spontaneous
  Country: US (occurrence: None)
  Receive Date: 20241223
  Receipt Date: 20241223
  Transmission Date: 20250115
  Serious: Yes (Disabling)
  Sender: Public
  Company Number: None

PATIENT
  Age: 25 Year
  Sex: Male
  Weight: 72 kg

DRUGS (2)
  1. ZOLOFT [Suspect]
     Active Substance: SERTRALINE HYDROCHLORIDE
     Indication: Obsessive-compulsive disorder
     Dates: start: 20230904, end: 20230904
  2. ZOLOFT [Suspect]
     Active Substance: SERTRALINE HYDROCHLORIDE
     Indication: Depression

REACTIONS (11)
  - Sexual dysfunction [None]
  - Emotional disorder [None]
  - Bradyphrenia [None]
  - Memory impairment [None]
  - Imperception [None]
  - Anxiety [None]
  - Fear [None]
  - Anosognosia [None]
  - Libido disorder [None]
  - Eye swelling [None]
  - Ocular cyst [None]

NARRATIVE: CASE EVENT DATE: 20230904
